FAERS Safety Report 12754673 (Version 2)
Quarter: 2016Q4

REPORT INFORMATION
  Report Type: Spontaneous
  Country: US (occurrence: US)
  Receive Date: 20160915
  Receipt Date: 20161223
  Transmission Date: 20170207
  Serious: Yes (Hospitalization, Other)
  Sender: FDA-Public Use
  Company Number: US-BAUSCH-BL-2016-022454

PATIENT
  Sex: Male

DRUGS (1)
  1. XIFAXAN [Suspect]
     Active Substance: RIFAXIMIN
     Indication: PRODUCT USED FOR UNKNOWN INDICATION
     Route: 065

REACTIONS (7)
  - Eye swelling [Unknown]
  - Depressed mood [Unknown]
  - Visual impairment [Unknown]
  - Malaise [Unknown]
  - Facial bones fracture [Unknown]
  - Concussion [Unknown]
  - Loss of consciousness [Unknown]
